FAERS Safety Report 25100786 (Version 1)
Quarter: 2025Q1

REPORT INFORMATION
  Report Type: Spontaneous
  Country: US (occurrence: US)
  Receive Date: 20250320
  Receipt Date: 20250320
  Transmission Date: 20250409
  Serious: No
  Sender: MYLAN
  Company Number: US-MYLANLABS-2025M1021845

PATIENT
  Sex: Female

DRUGS (2)
  1. ESTRADIOL [Suspect]
     Active Substance: ESTRADIOL
     Indication: Hormone replacement therapy
     Dosage: UNK, PM (EVERY NIGHT FOR A MONTH)
     Dates: start: 20250310
  2. Estro [Concomitant]
     Indication: Hypertension

REACTIONS (3)
  - Abdominal discomfort [Unknown]
  - Back pain [Unknown]
  - Vulvovaginal burning sensation [Unknown]
